FAERS Safety Report 6893566-3 (Version None)
Quarter: 2010Q3

REPORT INFORMATION
  Report Type: 
  Country: None (occurrence: None)
  Receive Date: 20100731
  Receipt Date: 20091015
  Transmission Date: 20110219
  Serious: No
  Sender: FDA-Public Use
  Company Number: US-PFIZER INC-2009255684

PATIENT
  Sex: Female
  Weight: 65.306 kg

DRUGS (2)
  1. GABAPENTIN [Suspect]
     Indication: NERVE INJURY
     Dosage: UNK
     Dates: start: 20070101
  2. AMLODIPINE BESILATE [Concomitant]
     Indication: HYPERTENSION
     Dosage: 2.5 MG, 1X/DAY

REACTIONS (8)
  - BLADDER DISORDER [None]
  - GINGIVAL PAIN [None]
  - GINGIVAL SWELLING [None]
  - HEADACHE [None]
  - MENTAL DISORDER [None]
  - MICTURITION DISORDER [None]
  - OROPHARYNGEAL BLISTERING [None]
  - SPEECH DISORDER [None]
